FAERS Safety Report 7012884-1 (Version None)
Quarter: 2010Q3

REPORT INFORMATION
  Report Type: 
  Country: None (occurrence: None)
  Receive Date: 20100924
  Receipt Date: 20100920
  Transmission Date: 20110219
  Serious: Yes (Death, Other)
  Sender: FDA-Public Use
  Company Number: PHHY2010IR62109

PATIENT
  Age: 12 Year
  Sex: Female

DRUGS (5)
  1. CYCLOSPORINE [Suspect]
     Indication: IMMUNOSUPPRESSION
     Dosage: 5 MG/KG PER DAY
  2. PREDNISOLONE [Suspect]
     Indication: IMMUNOSUPPRESSION
     Dosage: 60 MG/M2 PER DAY FOR 6 WEEKS
  3. METHOTREXATE [Suspect]
     Indication: IMMUNOSUPPRESSION
     Dosage: 20 MG/M2 PER WEEK
  4. VP-16 [Concomitant]
     Dosage: 100 MG/M2 PER WEEK FOR 4 WEEKS
  5. MERCAPTOPURINE [Concomitant]
     Dosage: 50 MG/M2 PER DAY

REACTIONS (10)
  - ACUTE LYMPHOCYTIC LEUKAEMIA RECURRENT [None]
  - DISSEMINATED INTRAVASCULAR COAGULATION [None]
  - DYSPNOEA [None]
  - LEUKOCYTOSIS [None]
  - LIVER FUNCTION TEST ABNORMAL [None]
  - LUNG INFILTRATION [None]
  - PLEURAL EFFUSION [None]
  - PYREXIA [None]
  - RESPIRATORY TRACT INFECTION [None]
  - SEPSIS [None]
